FAERS Safety Report 14898563 (Version 1)
Quarter: 2018Q2

REPORT INFORMATION
  Report Type: Report from Study
  Country: None (occurrence: US)
  Receive Date: 20180515
  Receipt Date: 20180515
  Transmission Date: 20180711
  Serious: Yes (Other)
  Sender: FDA-Public Use
  Company Number: US-ABBVIE-18P-163-2353198-00

PATIENT
  Sex: Male
  Weight: 5.18 kg

DRUGS (1)
  1. MAVYRET [Suspect]
     Active Substance: GLECAPREVIR\PIBRENTASVIR
     Indication: HEPATITIS C
     Dosage: 100/40 MG, FOR 12 WEEKS
     Route: 048
     Dates: start: 20180308

REACTIONS (4)
  - Nausea [Unknown]
  - Hepatic cancer [Unknown]
  - Hepatic cirrhosis [Unknown]
  - Weight decreased [Unknown]
